FAERS Safety Report 5195906-2 (Version None)
Quarter: 2007Q1

REPORT INFORMATION
  Report Type: 
  Country: None (occurrence: None)
  Receive Date: 20070102
  Receipt Date: 20061225
  Transmission Date: 20070707
  Serious: Yes (Life-Threatening, Hospitalization)
  Sender: FDA-Public Use
  Company Number: JP-MERCK-0611USA00774

PATIENT
  Age: 63 Year
  Sex: Female

DRUGS (4)
  1. FOSAMAX [Suspect]
     Indication: OSTEOPOROSIS
     Route: 048
     Dates: end: 20061013
  2. ALFACALCIDOL [Concomitant]
     Route: 048
     Dates: start: 20060915
  3. [THERAPY UNSPECIFIED] [Concomitant]
     Route: 048
     Dates: start: 20060915
  4. ALLELOCK [Concomitant]
     Route: 048
     Dates: start: 20041111

REACTIONS (1)
  - ANAEMIA [None]
